FAERS Safety Report 4541530-1 (Version None)
Quarter: 2004Q4

REPORT INFORMATION
  Report Type: 
  Country: None (occurrence: None)
  Receive Date: 20041227
  Receipt Date: 20040503
  Transmission Date: 20050328
  Serious: Yes (Life-Threatening, Hospitalization)
  Sender: FDA-Public Use
  Company Number: 2004SE01592

PATIENT
  Age: 79 Year
  Sex: Male

DRUGS (9)
  1. BLOPRESS [Suspect]
     Indication: HYPERTENSION
     Dosage: 8 MG DALY PO
     Route: 048
  2. BLOPRESS [Suspect]
     Indication: HYPERTENSION
     Dosage: 6 MG BID PO
     Route: 048
     Dates: start: 20030501, end: 20040224
  3. AMLODIPINE BESYLATE [Suspect]
     Indication: HYPERTENSION
     Dosage: 5 MG DAILY PO
     Route: 048
  4. AMLODIPINE BESYLATE [Suspect]
     Indication: HYPERTENSION
     Dosage: 15 MG DAILY PO
     Route: 048
     Dates: start: 20030501, end: 20040224
  5. CARVEDILOL [Concomitant]
  6. DOXAZOSIN MESYLATE [Concomitant]
  7. ALLOPURINOL [Concomitant]
  8. ETIZOLAM [Concomitant]
  9. FUROSEMIDE [Concomitant]

REACTIONS (5)
  - BLOOD PRESSURE INCREASED [None]
  - OEDEMA [None]
  - PLEURAL EFFUSION [None]
  - RESPIRATORY FAILURE [None]
  - WEIGHT INCREASED [None]
